FAERS Safety Report 13156828 (Version 1)
Quarter: 2017Q1

REPORT INFORMATION
  Report Type: Spontaneous
  Country: CA (occurrence: CA)
  Receive Date: 20170127
  Receipt Date: 20170127
  Transmission Date: 20170428
  Serious: Yes (Hospitalization)
  Sender: FDA-Public Use
  Company Number: CA-ROCHE-1882830

PATIENT
  Age: 52 Year
  Sex: Male

DRUGS (8)
  1. PEGASYS [Suspect]
     Active Substance: PEGINTERFERON ALFA-2A
     Indication: CHRONIC HEPATITIS C
     Dosage: THERAPY DURATION: 21.0 DAY(S)
     Route: 058
  2. IBAVYR [Suspect]
     Active Substance: RIBAVIRIN
     Route: 048
  3. IBAVYR [Suspect]
     Active Substance: RIBAVIRIN
     Indication: CHRONIC HEPATITIS C
     Route: 048
  4. IBAVYR [Suspect]
     Active Substance: RIBAVIRIN
     Route: 048
  5. IBAVYR [Suspect]
     Active Substance: RIBAVIRIN
     Route: 048
  6. SALBUTAMOL [Concomitant]
     Active Substance: ALBUTEROL
     Route: 065
  7. SOVALDI [Suspect]
     Active Substance: SOFOSBUVIR
     Indication: CHRONIC HEPATITIS C
     Route: 065
  8. METHADONE [Concomitant]
     Active Substance: METHADONE HYDROCHLORIDE
     Route: 065

REACTIONS (23)
  - Aggression [Unknown]
  - Homicidal ideation [Unknown]
  - Mood altered [Unknown]
  - Drug intolerance [Unknown]
  - Activities of daily living impaired [Unknown]
  - Agitation [Unknown]
  - Insomnia [Unknown]
  - Memory impairment [Unknown]
  - Hepatic pain [Unknown]
  - Hunger [Unknown]
  - Mood swings [Unknown]
  - Dysgeusia [Unknown]
  - Dyspnoea [Unknown]
  - Toothache [Unknown]
  - Abnormal dreams [Unknown]
  - Chest discomfort [Unknown]
  - Dizziness [Unknown]
  - Feeling abnormal [Unknown]
  - Anaemia [Unknown]
  - Depression [Unknown]
  - Feeling hot [Unknown]
  - Haemoglobin decreased [Unknown]
  - Suicidal ideation [Unknown]
